FAERS Safety Report 8619648-3 (Version None)
Quarter: 2012Q3

REPORT INFORMATION
  Report Type: 
  Country: None (occurrence: None)
  Receive Date: 20120824
  Receipt Date: 20120822
  Transmission Date: 20120928
  Serious: Yes (Hospitalization, Other)
  Sender: FDA-Public Use
  Company Number: US-009507513-1203USA01071

PATIENT

DRUGS (6)
  1. FOSAMAX [Suspect]
     Dosage: 10 MG, UNK
     Route: 048
     Dates: start: 20000105, end: 20010221
  2. FOSAMAX [Suspect]
     Dosage: 70 MG, UNK
     Route: 048
     Dates: start: 20080726, end: 20081101
  3. FOSAMAX [Suspect]
     Indication: PROPHYLAXIS
     Route: 048
     Dates: start: 19950101, end: 20080101
  4. FOSAMAX [Suspect]
     Dosage: 70 MG, UNK
     Route: 048
     Dates: start: 20010411, end: 20061127
  5. FOSAMAX [Suspect]
     Dosage: 35 MG, UNK
     Route: 048
     Dates: start: 20070718
  6. FOSAMAX PLUS D [Suspect]
     Indication: PROPHYLAXIS
     Dosage: 70MG/2800
     Route: 048
     Dates: start: 20070503, end: 20080428

REACTIONS (6)
  - FALL [None]
  - ARTHROTOMY [None]
  - OPEN REDUCTION OF FRACTURE [None]
  - DEVICE FAILURE [None]
  - LOW TURNOVER OSTEOPATHY [None]
  - FEMUR FRACTURE [None]
